FAERS Safety Report 10600923 (Version 1)
Quarter: 2014Q4

REPORT INFORMATION
  Report Type: Spontaneous
  Country: CA (occurrence: CA)
  Receive Date: 20141124
  Receipt Date: 20141124
  Transmission Date: 20150529
  Serious: Yes (Death)
  Sender: FDA-Public Use
  Company Number: CA-CIPLA LTD.-2014CA02007

PATIENT

DRUGS (1)
  1. DONEPEZIL [Suspect]
     Active Substance: DONEPEZIL
     Indication: DEMENTIA ALZHEIMER^S TYPE
     Dosage: ONE TABLET OF DONEPEZIL 5 MG DAILY FOR 6 WEEKS THEN TWO 5 MG TABLETS (10 MG DAILY) THEREAFTER

REACTIONS (1)
  - Cerebral haemorrhage [Fatal]
